FAERS Safety Report 13566885 (Version 2)
Quarter: 2017Q2

REPORT INFORMATION
  Report Type: Spontaneous
  Country: US (occurrence: US)
  Receive Date: 20170522
  Receipt Date: 20170525
  Transmission Date: 20170830
  Serious: No
  Sender: FDA-Public Use
  Company Number: US-TEVA-770180ACC

PATIENT
  Age: 40 Year
  Sex: Female

DRUGS (1)
  1. PARAGARD T 380A [Suspect]
     Active Substance: COPPER
     Indication: CONTRACEPTION
     Dates: start: 20090203, end: 20170510

REACTIONS (6)
  - Device breakage [Not Recovered/Not Resolved]
  - Embedded device [Not Recovered/Not Resolved]
  - Bacterial infection [Unknown]
  - Complication associated with device [Unknown]
  - Burning sensation [Unknown]
  - Fungal infection [Unknown]

NARRATIVE: CASE EVENT DATE: 20170510
